FAERS Safety Report 9175596 (Version 1)
Quarter: 2012Q4

REPORT INFORMATION
  Report Type: 
  Country: US (occurrence: US)
  Receive Date: 20120913
  Receipt Date: 20120913
  Transmission Date: 20130627
  Serious: No
  Sender: FDA-Public Use
  Company Number: US-009507513-2012SP028072

PATIENT

DRUGS (1)
  1. DULERA [Suspect]
     Indication: ASTHMA
     Dosage: 200/5, 2 DF(Puffs), bid
     Route: 055
     Dates: start: 201205, end: 201205

REACTIONS (1)
  - Dystonia [Recovered/Resolved]
